FAERS Safety Report 4631190-3 (Version None)
Quarter: 2005Q2

REPORT INFORMATION
  Report Type: 
  Country: None (occurrence: None)
  Receive Date: 20050406
  Receipt Date: 20050322
  Transmission Date: 20051028
  Serious: Yes (Hospitalization)
  Sender: FDA-Public Use
  Company Number: 2005BI002082

PATIENT
  Age: 42 Year
  Sex: Female

DRUGS (4)
  1. AVONEX [Suspect]
     Indication: MULTIPLE SCLEROSIS
     Dosage: 30 UG QW IM
     Route: 030
     Dates: start: 19980901
  2. AVONEX [Suspect]
     Indication: MULTIPLE SCLEROSIS
     Dosage: IM
     Route: 030
  3. NEURONTIN [Concomitant]
  4. COUMADIN [Concomitant]

REACTIONS (9)
  - ANKLE FRACTURE [None]
  - ASTHENIA [None]
  - FALL [None]
  - IMMOBILE [None]
  - MULTIPLE SCLEROSIS [None]
  - RIB FRACTURE [None]
  - THROMBOSIS [None]
  - URINARY TRACT INFECTION [None]
  - WRIST FRACTURE [None]
